FAERS Safety Report 5575009-5 (Version None)
Quarter: 2007Q4

REPORT INFORMATION
  Report Type: 
  Country: None (occurrence: None)
  Receive Date: 20071227
  Receipt Date: 20071221
  Transmission Date: 20080405
  Serious: Yes (Other)
  Sender: FDA-Public Use
  Company Number: CA-ALLERGAN-0714138US

PATIENT
  Sex: Male

DRUGS (4)
  1. COMBIGAN [Suspect]
     Indication: DRUG USE FOR UNKNOWN INDICATION
  2. NORVASC [Concomitant]
     Dosage: 5 MG, QD
  3. ASPIRIN [Concomitant]
     Dosage: UNK, QD
  4. WATER PILL [Concomitant]

REACTIONS (3)
  - CHEST PAIN [None]
  - HEADACHE [None]
  - MALAISE [None]
